FAERS Safety Report 8269698-4 (Version None)
Quarter: 2012Q2

REPORT INFORMATION
  Report Type: 
  Country: None (occurrence: None)
  Receive Date: 20120405
  Receipt Date: 20120329
  Transmission Date: 20120825
  Serious: Yes (Disabling, Other)
  Sender: FDA-Public Use
  Company Number: USA/USA/12/0023718

PATIENT
  Sex: Female

DRUGS (1)
  1. LEVOFLOXACIN [Suspect]
     Indication: BRONCHITIS
     Dates: start: 20111205, end: 20111201

REACTIONS (14)
  - PAIN [None]
  - BRONCHITIS [None]
  - SWOLLEN TONGUE [None]
  - ASTHENIA [None]
  - APHASIA [None]
  - SWELLING [None]
  - DIZZINESS [None]
  - OEDEMA MOUTH [None]
  - STUPOR [None]
  - TENDONITIS [None]
  - DRUG HYPERSENSITIVITY [None]
  - TREMOR [None]
  - GAIT DISTURBANCE [None]
  - PHARYNGEAL OEDEMA [None]
